FAERS Safety Report 11971850 (Version 12)
Quarter: 2022Q1

REPORT INFORMATION
  Report Type: Spontaneous
  Country: ES (occurrence: ES)
  Receive Date: 20160128
  Receipt Date: 20220113
  Transmission Date: 20220423
  Serious: Yes (Other)
  Sender: FDA-Public Use
  Company Number: ES-JNJFOC-20160115376

PATIENT

DRUGS (1)
  1. STELARA [Suspect]
     Active Substance: USTEKINUMAB
     Indication: Psoriasis
     Route: 058

REACTIONS (168)
  - Tongue carcinoma stage 0 [Unknown]
  - Neoplasm malignant [Unknown]
  - Intestinal adenocarcinoma [Unknown]
  - Renal cell carcinoma stage I [Unknown]
  - Prostate cancer [Unknown]
  - Colon adenoma [Unknown]
  - Squamous cell carcinoma [Unknown]
  - Ovarian germ cell embryonal carcinoma stage II [Unknown]
  - Epiglottic cancer [Unknown]
  - Bladder neoplasm [Unknown]
  - Benign breast neoplasm [Unknown]
  - Ovarian neoplasm [Unknown]
  - Colon neoplasm [Unknown]
  - Thyroid neoplasm [Unknown]
  - Colon operation [Unknown]
  - Nasal septal operation [Unknown]
  - Gastric operation [Unknown]
  - Cataract [Unknown]
  - Bipolar disorder [Unknown]
  - Pelvic inflammatory disease [Unknown]
  - Colitis ischaemic [Unknown]
  - Asthmatic crisis [Unknown]
  - Viral pericarditis [Unknown]
  - Hepatic encephalopathy [Unknown]
  - Loss of consciousness [Unknown]
  - Escherichia sepsis [Unknown]
  - Cerebellar infarction [Unknown]
  - Tuberculosis of peripheral lymph nodes [Unknown]
  - Gastric haemorrhage [Unknown]
  - Intracranial tumour haemorrhage [Unknown]
  - Suicide attempt [Unknown]
  - Myocardial ischaemia [Unknown]
  - Lung neoplasm malignant [Unknown]
  - Gallbladder obstruction [Unknown]
  - Alcoholic pancreatitis [Unknown]
  - Pancreatitis acute [Unknown]
  - Inguinal hernia repair [Unknown]
  - Transmyocardial revascularisation [Unknown]
  - Angina pectoris [Unknown]
  - Peripheral artery angioplasty [Unknown]
  - Angina unstable [Unknown]
  - Knee arthroplasty [Unknown]
  - Appendicitis [Unknown]
  - Psoriatic arthropathy [Unknown]
  - Cervical conisation [Unknown]
  - Ependymoma [Unknown]
  - Diarrhoea haemorrhagic [Unknown]
  - Ischaemic stroke [Unknown]
  - Hepatic cirrhosis [Unknown]
  - Renal failure [Unknown]
  - Pyoderma gangrenosum [Unknown]
  - Brain neoplasm [Unknown]
  - Myocardial infarction [Unknown]
  - Poisoning [Unknown]
  - Aortic injury [Unknown]
  - Cardiac failure congestive [Unknown]
  - Pyelonephritis acute [Unknown]
  - Implantable defibrillator insertion [Unknown]
  - Cerebral artery embolism [Unknown]
  - Reversible ischaemic neurological deficit [Unknown]
  - Peripheral ischaemia [Unknown]
  - Blood disorder [Unknown]
  - Arrhythmia supraventricular [Unknown]
  - Renal colic [Unknown]
  - Peripheral vascular disorder [Unknown]
  - Syncope [Unknown]
  - Migraine [Unknown]
  - Atrioventricular block [Unknown]
  - Epicondylitis [Unknown]
  - Tracheobronchitis [Unknown]
  - Intervertebral disc disorder [Unknown]
  - Migraine with aura [Unknown]
  - Hernia [Unknown]
  - Biopsy liver [Unknown]
  - Chronic kidney disease [Unknown]
  - Anaemia [Unknown]
  - Intermittent claudication [Unknown]
  - Arrhythmia [Unknown]
  - Abdominal operation [Unknown]
  - Cholangitis acute [Unknown]
  - Acute myocardial infarction [Unknown]
  - Respiratory failure [Unknown]
  - Cardiac failure [Unknown]
  - Type 2 diabetes mellitus [Unknown]
  - Embolic cerebral infarction [Unknown]
  - Malignant melanoma [Unknown]
  - Coronary revascularisation [Unknown]
  - Sarcoidosis [Unknown]
  - Metastases to liver [Unknown]
  - Acute pulmonary oedema [Unknown]
  - Peritonitis [Unknown]
  - Postictal paralysis [Unknown]
  - Wernicke-Korsakoff syndrome [Unknown]
  - Endarterectomy [Unknown]
  - Cutaneous T-cell lymphoma [Unknown]
  - Cerebral infarction [Unknown]
  - Surgery [Unknown]
  - Atrial fibrillation [Unknown]
  - Retinal tear [Unknown]
  - Arterial disorder [Unknown]
  - Hepatic adenoma [Unknown]
  - Lipoma excision [Unknown]
  - Colon cancer [Unknown]
  - Fracture [Unknown]
  - Cellulitis [Unknown]
  - Partial seizures [Unknown]
  - Psoriasis [Unknown]
  - Herpes zoster [Unknown]
  - Heart valve replacement [Unknown]
  - Pneumonia bacterial [Unknown]
  - Pneumonia [Unknown]
  - Upper limb fracture [Unknown]
  - Pneumonia [Unknown]
  - Pulmonary infarction [Unknown]
  - Sepsis [Unknown]
  - Breast cancer [Unknown]
  - Carotid endarterectomy [Unknown]
  - Generalised tonic-clonic seizure [Unknown]
  - Lymphocytosis [Unknown]
  - COVID-19 pneumonia [Unknown]
  - Nephritic syndrome [Unknown]
  - Embolic stroke [Unknown]
  - Coronavirus infection [Unknown]
  - Laryngeal cancer [Unknown]
  - Idiopathic generalised epilepsy [Unknown]
  - Amygdalotomy [Unknown]
  - Bladder cancer [Unknown]
  - Cataract [Unknown]
  - Embolism [Unknown]
  - Glioma [Unknown]
  - Pustular psoriasis [Unknown]
  - Femur fracture [Unknown]
  - Hypoglycaemia [Unknown]
  - Implant site infection [Unknown]
  - Squamous cell carcinoma of lung [Unknown]
  - Cerebral artery thrombosis [Unknown]
  - Acquired immunodeficiency syndrome [Unknown]
  - Bacteraemia [Unknown]
  - Transplant [Unknown]
  - Haemoptysis [Unknown]
  - Prostate cancer [Unknown]
  - Cholecystectomy [Unknown]
  - Suicidal ideation [Unknown]
  - Interstitial lung disease [Unknown]
  - Cholecystitis acute [Unknown]
  - Exposure during pregnancy [Unknown]
  - Arthritis [Unknown]
  - Dermatitis psoriasiform [Unknown]
  - Tooth extraction [Unknown]
  - Papilloma [Unknown]
  - Hepatic steatosis [Unknown]
  - Paraesthesia [Unknown]
  - Asthenia [Unknown]
  - Endometrial adenoma [Unknown]
  - Biopsy lymph gland [Unknown]
  - Dyspnoea [Unknown]
  - Benign neoplasm [Unknown]
  - Condition aggravated [Unknown]
  - Breast neoplasm [Unknown]
  - Pneumonitis [Unknown]
  - Bronchitis [Unknown]
  - Osteitis [Unknown]
  - Drug ineffective [Unknown]
  - Balance disorder [Unknown]
  - Liver disorder [Unknown]
  - Varices oesophageal [Unknown]
  - Splenomegaly [Unknown]
  - Upper respiratory tract infection [Unknown]
